FAERS Safety Report 23054627 (Version 3)
Quarter: 2023Q4

REPORT INFORMATION
  Report Type: Spontaneous
  Country: US (occurrence: US)
  Receive Date: 20231011
  Receipt Date: 20231112
  Transmission Date: 20240110
  Serious: Yes (Other)
  Sender: FDA-Public Use
  Company Number: US-JNJFOC-20230970686

PATIENT
  Age: 38 Year
  Sex: Female

DRUGS (3)
  1. STELARA [Suspect]
     Active Substance: USTEKINUMAB
     Indication: Colitis ulcerative
     Route: 058
     Dates: start: 2022
  2. STELARA [Suspect]
     Active Substance: USTEKINUMAB
  3. BUDESONIDE [Concomitant]
     Active Substance: BUDESONIDE

REACTIONS (5)
  - Colitis ulcerative [Recovered/Resolved]
  - Product dose omission issue [Unknown]
  - Product storage error [Unknown]
  - Mental disorder [Unknown]
  - Stress [Unknown]

NARRATIVE: CASE EVENT DATE: 20230801
